FAERS Safety Report 15306742 (Version 10)
Quarter: 2025Q4

REPORT INFORMATION
  Report Type: Spontaneous
  Country: EU (occurrence: EU)
  Receive Date: 20180822
  Receipt Date: 20251224
  Transmission Date: 20260117
  Serious: Yes (Other)
  Sender: NOVARTIS
  Company Number: PHHY2018IT075935

PATIENT
  Age: 64 Year
  Sex: Female
  Weight: 62 kg

DRUGS (74)
  1. LAPATINIB [Suspect]
     Active Substance: LAPATINIB
     Indication: Breast cancer
     Dosage: 250 MG, Q3W (FIVE TIMES A DAY)
     Route: 048
     Dates: start: 20171219, end: 20180108
  2. LAPATINIB [Suspect]
     Active Substance: LAPATINIB
     Dosage: 250 MG, Q3W (TWICE A DAY)
     Route: 048
     Dates: start: 20180216, end: 20180222
  3. LAPATINIB [Suspect]
     Active Substance: LAPATINIB
     Dosage: 250 MG, TIW (THREE TIMES A DAY)
     Route: 048
     Dates: start: 20180223, end: 20180302
  4. LAPATINIB [Suspect]
     Active Substance: LAPATINIB
     Dosage: 250 MG, Q3W (FOUR TIMES A DAY)
     Route: 048
     Dates: start: 20180303, end: 201803
  5. LAPATINIB [Suspect]
     Active Substance: LAPATINIB
     Dosage: 250 MG, TIW, FIVE TIMES A DAY
     Route: 048
     Dates: start: 20171219, end: 20180108
  6. LAPATINIB [Suspect]
     Active Substance: LAPATINIB
     Dosage: 250 MG, TIW, TWICE A DAY
     Route: 048
     Dates: start: 20180216, end: 20180222
  7. LAPATINIB [Suspect]
     Active Substance: LAPATINIB
     Dosage: 250 MG, TIW, FOUR TIMES A DAY
     Route: 048
     Dates: start: 20180303, end: 201803
  8. LAPATINIB [Suspect]
     Active Substance: LAPATINIB
     Dosage: 250 MG, QID, FOUR TIMES A DAY
     Route: 048
     Dates: start: 201803, end: 201803
  9. LAPATINIB [Suspect]
     Active Substance: LAPATINIB
     Dosage: 250 MG (0.3 DAY)
     Route: 048
     Dates: start: 20180330, end: 20180720
  10. PACLITAXEL [Suspect]
     Active Substance: PACLITAXEL
     Indication: Breast cancer metastatic
     Dosage: 85 MG/M2, QW (FREQUENCY: WEEKLYMOST RECENT DOSES PRIOR TO THE EVENT: 10 FEB 2017, 18 APR 2017, 26 AP
     Route: 042
     Dates: start: 20170131
  11. PACLITAXEL [Suspect]
     Active Substance: PACLITAXEL
     Indication: Breast cancer
     Dosage: 110 MILLIGRAM/SQ. METER, QWK85MG/M2
     Route: 042
     Dates: start: 20170131, end: 20170210
  12. PACLITAXEL [Suspect]
     Active Substance: PACLITAXEL
     Dosage: 110 MG, QW
     Route: 042
     Dates: start: 20170210
  13. PACLITAXEL [Suspect]
     Active Substance: PACLITAXEL
     Dosage: 80 MILLIGRAM/SQ. METER
     Route: 042
     Dates: start: 20170224
  14. PACLITAXEL [Suspect]
     Active Substance: PACLITAXEL
     Dosage: 85 MILLIGRAM/SQ. METER, QWK
     Route: 042
     Dates: start: 20170418
  15. PACLITAXEL [Suspect]
     Active Substance: PACLITAXEL
     Dosage: 95 MG, QW
     Route: 048
     Dates: start: 20170426, end: 20170628
  16. PACLITAXEL [Suspect]
     Active Substance: PACLITAXEL
     Dosage: 85 MILLIGRAM/SQ. METER, QWK
     Route: 048
     Dates: start: 20170705, end: 20170719
  17. PACLITAXEL [Suspect]
     Active Substance: PACLITAXEL
     Dosage: 115 MG, QW
     Route: 048
     Dates: start: 20170224, end: 20170403
  18. PACLITAXEL [Suspect]
     Active Substance: PACLITAXEL
     Dosage: 110 MG/M2, QW, (110 MILLIGRAM/SQ. METER, QWK)
     Route: 042
     Dates: start: 20170210
  19. EXEMESTANE [Suspect]
     Active Substance: EXEMESTANE
     Indication: Breast cancer
     Dosage: 25 MG, QD (25 MILLIGRAM, 1 DAYDATE OF MOST RENCET DOSE: 19/DEC/2017)
     Route: 048
     Dates: start: 20170726, end: 20171219
  20. CAPECITABINE [Suspect]
     Active Substance: CAPECITABINE
     Indication: Breast cancer
     Dosage: 1500 MG, BID (0.5 DAY, TABLET)
     Route: 048
     Dates: start: 20171220, end: 20180108
  21. CAPECITABINE [Suspect]
     Active Substance: CAPECITABINE
     Dosage: 1500 MG, Q3W,1500 MG, TIW (FOR 14 DAYS EVERY)
     Route: 048
     Dates: start: 20180119, end: 20180709
  22. VINORELBINE [Suspect]
     Active Substance: VINORELBINE TARTRATE
     Indication: Breast cancer
     Dosage: 180 MG/M2, QW (60 MG/M2, TIW)
     Route: 048
     Dates: start: 20180727, end: 20180817
  23. VINORELBINE [Suspect]
     Active Substance: VINORELBINE TARTRATE
     Dosage: 80 MG
     Route: 048
     Dates: end: 20181106
  24. VINORELBINE [Suspect]
     Active Substance: VINORELBINE TARTRATE
     Dosage: 240 MG, QW (80 MG, TIW  )
     Route: 048
     Dates: end: 20180911
  25. VINORELBINE [Suspect]
     Active Substance: VINORELBINE TARTRATE
     Dosage: 60 MG/M2, Q3W, (60 MILLIGRAM/SQ. METER, Q3WK)
     Route: 048
     Dates: start: 20180727, end: 20180817
  26. VINORELBINE [Suspect]
     Active Substance: VINORELBINE TARTRATE
     Dosage: 80 MG, Q3W
     Route: 048
     Dates: end: 20180911
  27. PERTUZUMAB [Suspect]
     Active Substance: PERTUZUMAB
     Indication: Breast cancer metastatic
     Dosage: 420 MG, Q3W (FREQUENCY: Q3W - EVERY 3 WEEKS MOST RECENT DOSE PRIOR TO THE EVENT: 24 FEB 2017)
     Route: 042
     Dates: start: 20170131, end: 20170131
  28. PERTUZUMAB [Suspect]
     Active Substance: PERTUZUMAB
     Indication: Breast cancer
     Dosage: 840 MG, TIW
     Route: 042
     Dates: start: 20170131, end: 20170131
  29. PERTUZUMAB [Suspect]
     Active Substance: PERTUZUMAB
     Indication: HER2 positive breast cancer
     Dosage: 420 MG, Q3W (8 MG/KG)
     Route: 042
     Dates: start: 20170224, end: 20171128
  30. PERTUZUMAB [Suspect]
     Active Substance: PERTUZUMAB
     Dosage: 420 MG, TIW (MOST RECENT DOSE PRIOR TO EVENT: 24 FEB 2017, MAINTENANCE DOSE)
     Route: 042
  31. PERTUZUMAB [Suspect]
     Active Substance: PERTUZUMAB
     Dosage: 420 MG, Q3W (FREQUENCY: Q3W - EVERY 3 WEEKS MOST RECENT DOSE PRIOR TO THE EVENT: 24 FEB 2017)
     Route: 042
     Dates: start: 20170131, end: 20170224
  32. PERTUZUMAB [Suspect]
     Active Substance: PERTUZUMAB
     Dosage: 420 MG, Q3W (FREQUENCY: Q3W - EVERY 3 WEEKS MOST RECENT DOSE PRIOR TO THE EVENT: 24 FEB 2017)
     Route: 042
     Dates: start: 20170224, end: 20171128
  33. TAXOL [Suspect]
     Active Substance: PACLITAXEL
     Indication: HER2 positive breast cancer
     Dosage: 85 MG/M2 (FREQUENCY: WEEKLYMOST RECENT DOSES PRIOR TO THE EVENT: 10/FEB/2017, 18/APR/2017, 26/APR/20
     Route: 042
     Dates: start: 20170131, end: 20170426
  34. AROMASIN [Suspect]
     Active Substance: EXEMESTANE
     Indication: Breast cancer
     Dosage: 25 MG, QD, (1 DAYDATE OF MOST RENCET DOSE: 19/DEC/2017)
     Route: 048
     Dates: start: 20170726, end: 20171219
  35. AROMASIN [Suspect]
     Active Substance: EXEMESTANE
     Dosage: 25 MILLIGRAM, 1 DAY
     Route: 048
     Dates: start: 20170726, end: 20171219
  36. TRASTUZUMAB [Suspect]
     Active Substance: TRASTUZUMAB
     Indication: Breast cancer metastatic
     Dosage: 8 MG/KG
     Route: 042
     Dates: start: 20170131, end: 20170731
  37. TRASTUZUMAB [Suspect]
     Active Substance: TRASTUZUMAB
     Indication: Breast cancer
     Dosage: 8 MG/KG, Q3W (FREQUENCY: Q3W - EVERY 3 WEEKS MOST RECENT DOSE PRIOR TO THE EVENT: 24 FEB 2017)
     Route: 042
     Dates: start: 20170131, end: 20170131
  38. TRASTUZUMAB [Suspect]
     Active Substance: TRASTUZUMAB
     Indication: HER2 positive breast cancer
     Dosage: 600 MG, Q3W
     Route: 042
     Dates: start: 20180727, end: 20180817
  39. TRASTUZUMAB [Suspect]
     Active Substance: TRASTUZUMAB
     Dosage: 6MG/KG TIW
     Route: 042
     Dates: start: 20180811, end: 20181009
  40. TRASTUZUMAB [Suspect]
     Active Substance: TRASTUZUMAB
     Dosage: 6 MG/KG, Q3W
     Route: 042
     Dates: start: 20170224, end: 20171128
  41. TRASTUZUMAB [Suspect]
     Active Substance: TRASTUZUMAB
     Dosage: 6 MG/KG, Q3W
     Route: 042
     Dates: start: 20180811, end: 20181009
  42. TRASTUZUMAB [Suspect]
     Active Substance: TRASTUZUMAB
     Dosage: 18 MG/KG, QW (6 MG/KG, TIW (MOST RECENT DOSE PRIOR TO THE EVENT: 24 FEB 2017, MAINTENANCE DOSE)
     Route: 042
  43. TRASTUZUMAB [Suspect]
     Active Substance: TRASTUZUMAB
     Dosage: 600 MG, Q3W
     Route: 042
     Dates: start: 20180727, end: 20180817
  44. TRASTUZUMAB [Suspect]
     Active Substance: TRASTUZUMAB
     Dosage: 6 MG/KG, TIW
     Route: 042
     Dates: start: 20170224
  45. AMBROXOL HYDROCHLORIDE [Concomitant]
     Active Substance: AMBROXOL HYDROCHLORIDE
     Indication: Product used for unknown indication
     Dosage: UNK
     Route: 065
     Dates: start: 20170702, end: 20170705
  46. XANAX [Concomitant]
     Active Substance: ALPRAZOLAM
     Indication: Product used for unknown indication
     Dosage: 1 DF
     Route: 042
     Dates: start: 20170131
  47. CHOLECALCIFEROL [Concomitant]
     Active Substance: CHOLECALCIFEROL
     Indication: Product used for unknown indication
     Dosage: UNK
     Route: 065
     Dates: start: 20170726
  48. GABAPENTIN [Concomitant]
     Active Substance: GABAPENTIN
     Indication: Product used for unknown indication
     Dosage: UNK (STRENGTH 100)
     Route: 065
  49. GABAPENTIN [Concomitant]
     Active Substance: GABAPENTIN
     Dosage: UNK (STRENGTH 300)
     Route: 065
  50. GABAPENTIN [Concomitant]
     Active Substance: GABAPENTIN
     Dosage: UNK (STRENGTH 400 MG)
     Route: 065
  51. GABAPENTIN [Concomitant]
     Active Substance: GABAPENTIN
     Dosage: UNK
     Route: 065
  52. GABAPENTIN [Concomitant]
     Active Substance: GABAPENTIN
     Dosage: UNK
     Route: 065
  53. GABAPENTIN [Concomitant]
     Active Substance: GABAPENTIN
     Dosage: UNK
     Route: 065
  54. ZOFRAN [Concomitant]
     Active Substance: ONDANSETRON HYDROCHLORIDE
     Indication: Product used for unknown indication
     Dosage: UNK (STRENGTH 4/16/8 MG)
     Route: 065
  55. ZOFRAN [Concomitant]
     Active Substance: ONDANSETRON HYDROCHLORIDE
     Dosage: UNK
     Route: 065
  56. BETAMETHASONE SODIUM PHOSPHATE [Concomitant]
     Active Substance: BETAMETHASONE SODIUM PHOSPHATE
     Indication: Product used for unknown indication
     Dosage: UNK
     Route: 065
  57. BECLOMETHASONE DIPROPIONATE [Concomitant]
     Active Substance: BECLOMETHASONE DIPROPIONATE
     Indication: Product used for unknown indication
     Dosage: UNK
     Route: 065
     Dates: start: 20170702, end: 20170705
  58. BECLOMETHASONE DIPROPIONATE [Concomitant]
     Active Substance: BECLOMETHASONE DIPROPIONATE
     Dosage: UNK
     Route: 065
  59. AMLODIPINE BESYLATE\OLMESARTAN MEDOXOMIL [Concomitant]
     Active Substance: AMLODIPINE BESYLATE\OLMESARTAN MEDOXOMIL
     Indication: Product used for unknown indication
     Dosage: UNK
     Route: 065
     Dates: start: 20171004
  60. IMODIUM [Concomitant]
     Active Substance: LOPERAMIDE HYDROCHLORIDE
     Indication: Product used for unknown indication
     Dosage: UNK
     Route: 065
     Dates: start: 20170705, end: 20170821
  61. DENOSUMAB [Concomitant]
     Active Substance: DENOSUMAB
     Indication: Product used for unknown indication
     Dosage: UNK
     Route: 065
     Dates: start: 20170823, end: 20180727
  62. RACECADOTRIL [Concomitant]
     Active Substance: RACECADOTRIL
     Indication: Diarrhoea
     Dosage: UNK
     Route: 065
     Dates: start: 20170705, end: 20170726
  63. RACECADOTRIL [Concomitant]
     Active Substance: RACECADOTRIL
     Dosage: UNK
     Route: 065
     Dates: start: 20170531
  64. MEDROL [Concomitant]
     Active Substance: METHYLPREDNISOLONE
     Indication: Product used for unknown indication
     Dosage: UNK
     Route: 065
     Dates: start: 20180720, end: 20180724
  65. MEDROL [Concomitant]
     Active Substance: METHYLPREDNISOLONE
     Dosage: UNK
     Route: 065
     Dates: start: 20180725, end: 20180731
  66. SERTRALINE [Concomitant]
     Active Substance: SERTRALINE HYDROCHLORIDE
     Indication: Product used for unknown indication
     Dosage: UNK
     Route: 065
  67. SERTRALINE [Concomitant]
     Active Substance: SERTRALINE HYDROCHLORIDE
     Dosage: UNK
     Route: 065
  68. BECLOMETHASONE DIPROPIONATE [Concomitant]
     Active Substance: BECLOMETHASONE DIPROPIONATE
     Indication: HER2 positive breast cancer
     Dosage: UNK
     Route: 065
     Dates: start: 20170702, end: 20170705
  69. RACECADOTRIL [Concomitant]
     Active Substance: RACECADOTRIL
     Indication: Diarrhoea
     Dosage: UNK
     Route: 065
     Dates: start: 20170531
  70. RACECADOTRIL [Concomitant]
     Active Substance: RACECADOTRIL
     Indication: Diarrhoea
     Dosage: UNK
     Route: 065
     Dates: start: 20170705, end: 20170726
  71. TRIDELTA [Concomitant]
     Indication: Product used for unknown indication
     Dosage: UNK
     Route: 065
     Dates: start: 20170726
  72. PROLIA [Concomitant]
     Active Substance: DENOSUMAB
     Indication: Product used for unknown indication
     Dosage: UNK
     Route: 065
     Dates: start: 20170823, end: 20180727
  73. SERTRALINE HYDROCHLORIDE [Concomitant]
     Active Substance: SERTRALINE HYDROCHLORIDE
     Indication: Product used for unknown indication
     Dosage: UNK
     Route: 065
  74. SERTRALINE HYDROCHLORIDE [Concomitant]
     Active Substance: SERTRALINE HYDROCHLORIDE
     Dosage: UNK
     Route: 065

REACTIONS (13)
  - Hypokalaemia [Recovered/Resolved]
  - Hypokalaemia [Recovered/Resolved]
  - Hypokalaemia [Recovered/Resolved]
  - Diarrhoea [Recovered/Resolved]
  - Diarrhoea [Recovered/Resolved]
  - Paraesthesia [Recovered/Resolved]
  - Leukopenia [Recovered/Resolved]
  - Cough [Recovered/Resolved]
  - Diarrhoea [Recovered/Resolved]
  - Hypokalaemia [Recovered/Resolved]
  - Malaise [Recovered/Resolved]
  - Asthenia [Recovered/Resolved]
  - Diarrhoea [Recovered/Resolved]

NARRATIVE: CASE EVENT DATE: 20170418
